FAERS Safety Report 5649724-9 (Version None)
Quarter: 2008Q1

REPORT INFORMATION
  Report Type: 
  Country: None (occurrence: None)
  Receive Date: 20080304
  Receipt Date: 20080221
  Transmission Date: 20080703
  Serious: Yes (Hospitalization, Disabling)
  Sender: FDA-Public Use
  Company Number: HK-PFIZER INC-2008016283

PATIENT
  Sex: Female
  Weight: 67 kg

DRUGS (7)
  1. BLINDED PREGABALIN (CI-1008) [Suspect]
     Indication: PROCEDURAL PAIN
     Route: 048
  2. ACETAMINOPHEN [Concomitant]
     Route: 048
  3. TRAMADOL HCL [Concomitant]
     Route: 048
     Dates: start: 20080214
  4. MORPHINE [Concomitant]
     Dosage: TEXT:TOTAL 26MG
     Route: 042
     Dates: start: 20080213, end: 20080215
  5. METOCLOPRAMIDE [Concomitant]
     Route: 042
     Dates: start: 20080213, end: 20080215
  6. AUGMENTIN '250' [Concomitant]
     Route: 042
  7. CEFUROXIME [Concomitant]
     Route: 042
     Dates: start: 20080219

REACTIONS (3)
  - PYREXIA [None]
  - TACHYCARDIA [None]
  - URETERIC STENOSIS [None]
